FAERS Safety Report 7052286-5 (Version None)
Quarter: 2010Q4

REPORT INFORMATION
  Report Type: 
  Country: None (occurrence: None)
  Receive Date: 20101019
  Receipt Date: 20101013
  Transmission Date: 20110411
  Serious: Yes (Life-Threatening, Hospitalization, Other)
  Sender: FDA-Public Use
  Company Number: US-ELI_LILLY_AND_COMPANY-US201010003826

PATIENT
  Sex: Female

DRUGS (2)
  1. HUMALOG [Suspect]
     Indication: DIABETES MELLITUS
     Dosage: UNK, UNK
     Dates: start: 20091001
  2. HUMALOG [Suspect]
     Dates: start: 20091001

REACTIONS (7)
  - ASTHENIA [None]
  - HAEMOPTYSIS [None]
  - HEARING IMPAIRED [None]
  - LUNG DISORDER [None]
  - NERVE INJURY [None]
  - OSTEOPOROSIS [None]
  - PAIN [None]
